FAERS Safety Report 25215248 (Version 1)
Quarter: 2025Q2

REPORT INFORMATION
  Report Type: Spontaneous
  Country: CN (occurrence: CN)
  Receive Date: 20250418
  Receipt Date: 20250418
  Transmission Date: 20250717
  Serious: Yes (Other)
  Sender: GE HEALTHCARE
  Company Number: CN-GE HEALTHCARE-2025CSU004799

PATIENT
  Age: 70 Year
  Sex: Male
  Weight: 70 kg

DRUGS (2)
  1. VISIPAQUE [Suspect]
     Active Substance: IODIXANOL
     Indication: Angiocardiogram
     Route: 042
     Dates: start: 20250401, end: 20250401
  2. VISIPAQUE [Suspect]
     Active Substance: IODIXANOL
     Indication: Angioplasty

REACTIONS (4)
  - Skin discolouration [Recovered/Resolved]
  - Skin temperature increased [Recovered/Resolved]
  - Erythema [Recovered/Resolved]
  - Contrast media allergy [Recovered/Resolved]

NARRATIVE: CASE EVENT DATE: 20250401
